FAERS Safety Report 6908593-7 (Version None)
Quarter: 2010Q3

REPORT INFORMATION
  Report Type: 
  Country: None (occurrence: None)
  Receive Date: 20100805
  Receipt Date: 20100726
  Transmission Date: 20110219
  Serious: Yes (Other)
  Sender: FDA-Public Use
  Company Number: US-MERCK-0708USA00998

PATIENT
  Age: 45 Year
  Sex: Female
  Weight: 49 kg

DRUGS (8)
  1. FOSAMAX [Suspect]
     Indication: OSTEOPENIA
     Route: 048
     Dates: start: 20010701, end: 20040501
  2. FOSAMAX [Suspect]
     Indication: OSTEOPOROSIS
     Route: 048
     Dates: start: 20010701, end: 20040501
  3. ESTRACE [Concomitant]
     Indication: HORMONE THERAPY
     Route: 065
     Dates: start: 20010101
  4. ESTRACE [Concomitant]
     Route: 065
     Dates: end: 20050421
  5. LEXAPRO [Concomitant]
     Indication: DEPRESSION
     Route: 065
     Dates: start: 20010101, end: 20070101
  6. [THERAPY UNSPECIFIED] [Concomitant]
     Indication: BLOOD CHOLESTEROL INCREASED
     Route: 065
     Dates: start: 20000101
  7. TUSSI-12 [Concomitant]
     Indication: COUGH
     Route: 065
     Dates: start: 20010601
  8. TUSSI-12 [Concomitant]
     Indication: SINUS CONGESTION
     Route: 065
     Dates: start: 20010601

REACTIONS (26)
  - ABSCESS [None]
  - ABSCESS ORAL [None]
  - ANXIETY [None]
  - COLITIS ULCERATIVE [None]
  - CONVULSION [None]
  - DENTAL CARIES [None]
  - DEPRESSION [None]
  - DRUG EFFECT DECREASED [None]
  - DYSPAREUNIA [None]
  - FALL [None]
  - FEAR [None]
  - FUNGAL INFECTION [None]
  - HYPERSENSITIVITY [None]
  - HYPOAESTHESIA [None]
  - IMPAIRED HEALING [None]
  - LIMB INJURY [None]
  - OESTROGEN DEFICIENCY [None]
  - ORAL INFECTION [None]
  - ORAL TORUS [None]
  - OSTEOMYELITIS [None]
  - OSTEONECROSIS OF JAW [None]
  - OSTEOPENIA [None]
  - PAIN [None]
  - PERNICIOUS ANAEMIA [None]
  - RECTAL CANCER [None]
  - VAGINAL DISORDER [None]
